FAERS Safety Report 6093628-7 (Version None)
Quarter: 2009Q1

REPORT INFORMATION
  Report Type: 
  Country: None (occurrence: None)
  Receive Date: 20090226
  Receipt Date: 20090216
  Transmission Date: 20090719
  Serious: Yes (Hospitalization, Other)
  Sender: FDA-Public Use
  Company Number: PHHY2009FR05772

PATIENT
  Sex: Female

DRUGS (4)
  1. VOLTAREN [Suspect]
     Indication: BACK PAIN
     Dosage: 1 DF, BID
     Dates: start: 20081209, end: 20081213
  2. ASPIRIN [Interacting]
     Indication: RETINAL VEIN OCCLUSION
     Dosage: 1 DF DAILY FROM 3 YEARS
     Route: 048
     Dates: end: 20081213
  3. REQUIP [Concomitant]
  4. SINEMET [Concomitant]

REACTIONS (4)
  - DIVERTICULUM INTESTINAL HAEMORRHAGIC [None]
  - DRUG INTERACTION [None]
  - HYPOVOLAEMIC SHOCK [None]
  - RECTAL HAEMORRHAGE [None]
